FAERS Safety Report 7971425-2 (Version None)
Quarter: 2011Q4

REPORT INFORMATION
  Report Type: 
  Country: None (occurrence: None)
  Receive Date: 20111212
  Receipt Date: 20111201
  Transmission Date: 20120403
  Serious: Yes (Hospitalization)
  Sender: FDA-Public Use
  Company Number: US-ASTRAZENECA-2011SE72810

PATIENT
  Age: 49 Year
  Sex: Male

DRUGS (4)
  1. VENTOLIN HFA [Suspect]
     Route: 055
     Dates: start: 20110901, end: 20110907
  2. LISINOPRIL [Suspect]
     Route: 048
  3. ADVAIR DISKUS 100/50 [Suspect]
     Dosage: 500/50 MCG
     Route: 055
     Dates: start: 20110901, end: 20110907
  4. METOPROLOL SUCCINATE [Suspect]
     Route: 048

REACTIONS (4)
  - OEDEMA MOUTH [None]
  - PHARYNGEAL OEDEMA [None]
  - TONGUE OEDEMA [None]
  - FACE OEDEMA [None]
